FAERS Safety Report 4695796-8 (Version None)
Quarter: 2005Q2

REPORT INFORMATION
  Report Type: 
  Country: None (occurrence: None)
  Receive Date: 20050620
  Receipt Date: 20050620
  Transmission Date: 20051028
  Serious: No
  Sender: FDA-Public Use
  Company Number: None

PATIENT
  Sex: Female
  Weight: 63.5036 kg

DRUGS (2)
  1. DECONAMINE COLD MEDS [Suspect]
     Indication: BIPOLAR I DISORDER
  2. DECONAMINE COLD MEDS [Suspect]
     Indication: DEPRESSION

REACTIONS (1)
  - PSYCHOTIC DISORDER [None]
